FAERS Safety Report 7687160-4 (Version None)
Quarter: 2011Q3

REPORT INFORMATION
  Report Type: 
  Country: None (occurrence: None)
  Receive Date: 20110816
  Receipt Date: 20110816
  Transmission Date: 20111222
  Serious: Yes (Death, Hospitalization, Other)
  Sender: FDA-Public Use
  Company Number: PHHO2010US13515

PATIENT
  Sex: Male
  Weight: 83.3 kg

DRUGS (3)
  1. IMATINIB MESYLATE [Suspect]
     Indication: PULMONARY ARTERIAL HYPERTENSION
     Dosage: 100 MG, UNK
     Route: 048
     Dates: start: 20100701, end: 20100830
  2. REMODULIN [Concomitant]
  3. DIURETICS [Concomitant]

REACTIONS (14)
  - HYPOVOLAEMIA [None]
  - RENAL FAILURE ACUTE [None]
  - HYPOTENSION [None]
  - HYPOCALCAEMIA [None]
  - DIARRHOEA [None]
  - PERITONITIS BACTERIAL [None]
  - HYPERKALAEMIA [None]
  - THROMBOCYTOPENIA [None]
  - HAEMOGLOBIN DECREASED [None]
  - CARDIAC FAILURE [None]
  - ATRIAL FIBRILLATION [None]
  - VOMITING [None]
  - DEHYDRATION [None]
  - HYPONATRAEMIA [None]
